FAERS Safety Report 7005691-7 (Version None)
Quarter: 2010Q3

REPORT INFORMATION
  Report Type: 
  Country: None (occurrence: None)
  Receive Date: 20100917
  Receipt Date: 20100622
  Transmission Date: 20110219
  Serious: Yes (Other)
  Sender: FDA-Public Use
  Company Number: DSA_43357_2010

PATIENT
  Sex: Female

DRUGS (5)
  1. XENAZINE [Suspect]
     Indication: HUNTINGTON'S DISEASE
     Dosage: 37.5 MG BID ORAL, 25 MG BID ORAL
     Route: 048
     Dates: end: 20100601
  2. XENAZINE [Suspect]
     Indication: HUNTINGTON'S DISEASE
     Dosage: 37.5 MG BID ORAL, 25 MG BID ORAL
     Route: 048
     Dates: start: 20100601
  3. LEXAPRO [Concomitant]
  4. CLONIDINE [Concomitant]
  5. LOVASTATIN [Concomitant]

REACTIONS (2)
  - SOMNOLENCE [None]
  - TARDIVE DYSKINESIA [None]
